FAERS Safety Report 18172718 (Version 2)
Quarter: 2020Q3

REPORT INFORMATION
  Report Type: Spontaneous
  Country: US (occurrence: US)
  Receive Date: 20200820
  Receipt Date: 20200908
  Transmission Date: 20201103
  Serious: Yes (Hospitalization, Other)
  Sender: FDA-Public Use
  Company Number: US-AUROBINDO-AUR-APL-2020-040262

PATIENT
  Sex: Female

DRUGS (4)
  1. PHENYTOIN. [Interacting]
     Active Substance: PHENYTOIN
     Indication: SEIZURE PROPHYLAXIS
     Dosage: UNK
     Route: 065
  2. CAPECITABINE. [Suspect]
     Active Substance: CAPECITABINE
     Indication: TRIPLE NEGATIVE BREAST CANCER
     Dosage: UNK
     Route: 065
  3. CAPECITABINE. [Interacting]
     Active Substance: CAPECITABINE
     Indication: BREAST CANCER STAGE III
  4. LACOSAMIDE. [Concomitant]
     Active Substance: LACOSAMIDE
     Indication: SEIZURE
     Dosage: UNK
     Route: 065

REACTIONS (5)
  - Drug interaction [Recovered/Resolved]
  - Confusional state [Recovered/Resolved]
  - Amnesia [Recovering/Resolving]
  - Toxicity to various agents [Recovered/Resolved]
  - Dyskinesia [Recovered/Resolved]
